FAERS Safety Report 20430143 (Version 1)
Quarter: 2022Q1

REPORT INFORMATION
  Report Type: Report from Study
  Country: FR (occurrence: FR)
  Receive Date: 20220204
  Receipt Date: 20220204
  Transmission Date: 20220424
  Serious: Yes (Other)
  Sender: FDA-Public Use
  Company Number: FR-SERVIER-S20003817

PATIENT

DRUGS (5)
  1. PEGASPARGASE [Suspect]
     Active Substance: PEGASPARGASE
     Indication: Acute lymphocytic leukaemia
     Dosage: 1800 IU
     Route: 042
     Dates: start: 20191223, end: 20191223
  2. TN  UNSPECIFIED [Concomitant]
     Indication: Acute lymphocytic leukaemia
     Dosage: 2 MG, D8, D15, D22, AND D29
     Route: 042
     Dates: start: 20191219, end: 20200109
  3. TN  UNSPECIFIED [Concomitant]
     Indication: Acute lymphocytic leukaemia
     Dosage: 9 MG, D8 TO D28
     Route: 048
     Dates: start: 20191219, end: 20200108
  4. TN  UNSPECIFIED [Concomitant]
     Indication: Acute lymphocytic leukaemia
     Dosage: 80 MG, D1 TO D7
     Route: 048
     Dates: start: 20191212, end: 20191218
  5. TN  UNSPECIFIED [Concomitant]
     Indication: Acute lymphocytic leukaemia
     Dosage: 12 MG, D1 OF PREPHASE AND D13
     Route: 037
     Dates: start: 20191212, end: 20200106

REACTIONS (4)
  - Blood fibrinogen decreased [Recovered/Resolved]
  - Hepatic steatosis [Recovered/Resolved]
  - Hyperlipidaemia [Recovered/Resolved]
  - Hypercholesterolaemia [Recovered/Resolved]

NARRATIVE: CASE EVENT DATE: 20200106
